FAERS Safety Report 8102740-X (Version None)
Quarter: 2012Q1

REPORT INFORMATION
  Report Type: 
  Country: None (occurrence: None)
  Receive Date: 20120201
  Receipt Date: 20120124
  Transmission Date: 20120608
  Serious: Yes (Hospitalization, Other)
  Sender: FDA-Public Use
  Company Number: US-BAYER-2010-001987

PATIENT
  Age: 19 Year
  Sex: Female

DRUGS (17)
  1. YASMIN [Suspect]
     Dosage: UNK
     Route: 048
     Dates: start: 20030801, end: 20031101
  2. AMOXICILLIN [Concomitant]
     Dosage: UNK
     Dates: start: 20030501, end: 20090501
  3. TYLOX [Concomitant]
  4. PROPOXYPHENE HYDROCHLORIDE [Concomitant]
     Dosage: UNK
     Dates: start: 20051101, end: 20090501
  5. LAMICTAL [Concomitant]
  6. FOLIC ACID [Concomitant]
  7. FLUCONAZOLE [Concomitant]
     Dosage: 150 MG, UNK
     Dates: start: 20071201
  8. VANCOMYCIN [Concomitant]
  9. METFORMIN HCL [Concomitant]
  10. ZOLPIDEM [Concomitant]
     Dosage: 5 MG, UNK
     Dates: start: 20071201
  11. ALBUTEROL [Concomitant]
     Dosage: UNK
     Dates: start: 20020801, end: 20080501
  12. AMOXICILLIN [Concomitant]
     Dosage: 500 MG, UNK
     Dates: start: 20071201
  13. TRIMETHOBENZAMIDE HCL [Concomitant]
     Dosage: 300 MG, UNK
     Dates: start: 20071101
  14. PREDNISONE TAB [Concomitant]
     Dosage: UNK
     Dates: start: 20030601, end: 20090501
  15. ACETAMINOPHEN [Concomitant]
     Dosage: UNK
     Dates: start: 20051101, end: 20090601
  16. PRILOSEC [Concomitant]
     Dosage: 20 MG, UNK
     Dates: start: 20070818, end: 20071021
  17. CITALOPRAM HYDROBROMIDE [Concomitant]
     Dosage: 20 MG, UNK
     Dates: start: 20071101

REACTIONS (2)
  - GALLBLADDER DISORDER [None]
  - BILIARY DYSKINESIA [None]
